FAERS Safety Report 5506652-7 (Version None)
Quarter: 2007Q4

REPORT INFORMATION
  Report Type: 
  Country: None (occurrence: None)
  Receive Date: 20071105
  Receipt Date: 20071022
  Transmission Date: 20080405
  Serious: Yes (Hospitalization)
  Sender: FDA-Public Use
  Company Number: US-ROCHE-526986

PATIENT
  Age: 74 Year
  Sex: Male

DRUGS (19)
  1. CAPECITABINE [Suspect]
     Route: 048
     Dates: start: 20061026
  2. CAPECITABINE [Suspect]
     Route: 048
  3. ACETAMINOPHEN [Concomitant]
     Indication: DISCOMFORT
     Dates: start: 20061119, end: 20061120
  4. ANTACID TAB [Concomitant]
     Dates: start: 20061119, end: 20061120
  5. ALPRAZOLAM [Concomitant]
     Indication: ANXIETY
     Dates: start: 20061119, end: 20061120
  6. DOCUSATE SODIUM [Concomitant]
     Indication: LAXATIVE SUPPORTIVE CARE
     Dates: start: 20061119, end: 20061120
  7. LOVASTATIN [Concomitant]
     Indication: LIPIDS INCREASED
     Dates: start: 20061119, end: 20061120
  8. MIRALAX [Concomitant]
     Indication: GASTROINTESTINAL DISORDER
     Dates: start: 20061119, end: 20061120
  9. FENTANYL TRANSDERMAL SYSTEM [Concomitant]
     Indication: PAIN
     Dates: start: 20061119, end: 20061120
  10. FLUTICASONE PROPIONATE [Concomitant]
     Route: 055
     Dates: start: 20061119, end: 20061120
  11. SALMETEROL [Concomitant]
     Route: 055
     Dates: start: 20061119, end: 20061120
  12. TOPROL-XL [Concomitant]
     Indication: HYPERTENSION
     Dates: start: 20061119, end: 20061120
  13. PANTOPRAZOLE SODIUM [Concomitant]
     Indication: PROPHYLAXIS
     Dates: start: 20061119, end: 20061120
  14. MEGESTROL ACETATE [Concomitant]
     Indication: DECREASED APPETITE
     Dates: start: 20061119, end: 20061120
  15. SERTRALINE [Concomitant]
     Indication: DEPRESSION
     Dates: start: 20061119, end: 20061120
  16. OXYBUTYNIN CHLORIDE [Concomitant]
     Indication: BLADDER SPASM
     Dates: start: 20061119, end: 20061120
  17. OXYCODONE HCL [Concomitant]
     Indication: PAIN
     Dates: start: 20061119, end: 20061120
  18. TEMAZEPAM [Concomitant]
     Indication: SOMNOLENCE
     Dates: start: 20061119, end: 20061120
  19. WARFARIN SODIUM [Concomitant]
     Indication: THROMBOSIS PROPHYLAXIS
     Dates: start: 20061119, end: 20061120

REACTIONS (1)
  - SMALL INTESTINAL OBSTRUCTION [None]
